FAERS Safety Report 6741690-8 (Version None)
Quarter: 2010Q2

REPORT INFORMATION
  Report Type: 
  Country: None (occurrence: None)
  Receive Date: 20100524
  Receipt Date: 20080818
  Transmission Date: 20101027
  Serious: Yes (Hospitalization)
  Sender: FDA-Public Use
  Company Number: LEO-2010-00423

PATIENT
  Sex: Female
  Weight: 2.83 kg

DRUGS (13)
  1. INNOHEP [Suspect]
     Indication: DRUG EXPOSURE DURING PREGNANCY
     Dosage: TRANSPLACENTAL
     Route: 064
     Dates: start: 20020215, end: 20020426
  2. FOLIC ACID [Concomitant]
  3. TEGRETOL [Concomitant]
  4. VALPROATE SODIUM [Concomitant]
  5. KAPAKE (CODEINE PHOSPHATE, PARACETAMOL) [Concomitant]
  6. FERROUS SULFATE TAB [Concomitant]
  7. MEPERIDINE HCL [Concomitant]
  8. MAGNESIUM TRISILICATE (MAGNESIUM TRISILICATE) [Concomitant]
  9. LACTULOSE [Concomitant]
  10. ACETAMINOPHEN [Concomitant]
  11. CEPHALEXIN [Concomitant]
  12. AUGMENTIN '125' [Concomitant]
  13. BETAMETHASONE [Concomitant]

REACTIONS (2)
  - MATERNAL DRUGS AFFECTING FOETUS [None]
  - PREMATURE BABY [None]
